FAERS Safety Report 5204553-5 (Version None)
Quarter: 2007Q1

REPORT INFORMATION
  Report Type: 
  Country: None (occurrence: None)
  Receive Date: 20070110
  Receipt Date: 20060505
  Transmission Date: 20070707
  Serious: No
  Sender: FDA-Public Use
  Company Number: US-BRISTOL-MYERS SQUIBB COMPANY-13369384

PATIENT
  Age: 47 Year
  Sex: Female

DRUGS (6)
  1. ABILIFY [Suspect]
     Indication: BIPOLAR DISORDER
     Dates: start: 20060124
  2. ZELNORM [Concomitant]
  3. CLONAZEPAM [Concomitant]
  4. WELLBUTRIN [Concomitant]
  5. LAMICTAL [Concomitant]
  6. TRILEPTAL [Concomitant]

REACTIONS (1)
  - DYSPEPSIA [None]
